FAERS Safety Report 8243368-0 (Version None)
Quarter: 2012Q1

REPORT INFORMATION
  Report Type: 
  Country: None (occurrence: None)
  Receive Date: 20120329
  Receipt Date: 20120326
  Transmission Date: 20120608
  Serious: Yes (Other)
  Sender: FDA-Public Use
  Company Number: FR-ROCHE-1053123

PATIENT
  Sex: Male
  Weight: 72 kg

DRUGS (2)
  1. MABTHERA [Suspect]
     Indication: ANTI-NEUTROPHIL CYTOPLASMIC ANTIBODY POSITIVE VASCULITIS
     Route: 042
     Dates: start: 20090402
  2. PREDNISONE [Suspect]
     Indication: WEGENER'S GRANULOMATOSIS
     Route: 048
     Dates: start: 20081226

REACTIONS (2)
  - CATARACT [None]
  - VISION BLURRED [None]
